FAERS Safety Report 21323020 (Version 2)
Quarter: 2022Q4

REPORT INFORMATION
  Report Type: Spontaneous
  Country: US (occurrence: US)
  Receive Date: 20220912
  Receipt Date: 20221014
  Transmission Date: 20230113
  Serious: No
  Sender: FDA-Public Use
  Company Number: US-Calliditas-2022CAL00306

PATIENT
  Age: 50 Year
  Sex: Male
  Weight: 103.8 kg

DRUGS (4)
  1. TARPEYO [Suspect]
     Active Substance: BUDESONIDE
     Indication: IgA nephropathy
     Dosage: 16 MG (4 MG CAPSULES) ONCE DAILY
     Route: 048
     Dates: start: 20220706, end: 202208
  2. LISINOPRIL [Concomitant]
     Active Substance: LISINOPRIL
  3. ATORVASTATIN [Concomitant]
     Active Substance: ATORVASTATIN
  4. VITAMINS [Concomitant]
     Active Substance: VITAMINS

REACTIONS (6)
  - Chest discomfort [Recovered/Resolved]
  - Sinus congestion [Recovered/Resolved]
  - Asthenopia [Recovered/Resolved]
  - Chest pain [Recovered/Resolved]
  - Prescribed underdose [Recovered/Resolved]
  - COVID-19 [Unknown]

NARRATIVE: CASE EVENT DATE: 20220701
